FAERS Safety Report 5513272-7 (Version None)
Quarter: 2007Q4

REPORT INFORMATION
  Report Type: 
  Country: None (occurrence: None)
  Receive Date: 20071108
  Receipt Date: 20071019
  Transmission Date: 20080405
  Serious: No
  Sender: FDA-Public Use
  Company Number: 071004491

PATIENT
  Sex: Male

DRUGS (5)
  1. BIAXIN [Suspect]
     Indication: NASOPHARYNGITIS
     Dosage: ORAL
     Route: 048
     Dates: start: 20071010, end: 20071015
  2. MUCINEX [Suspect]
     Indication: RHINORRHOEA
     Dosage: 1TABL, Q.D, ORAL
     Route: 048
     Dates: start: 20071010, end: 20071015
  3. FOLIC ACID [Concomitant]
  4. POTASSIUM CHLORIDE [Concomitant]
  5. VITAMIN B12 [Concomitant]

REACTIONS (1)
  - ATRIAL FIBRILLATION [None]
